FAERS Safety Report 5839761-3 (Version None)
Quarter: 2008Q3

REPORT INFORMATION
  Report Type: 
  Country: None (occurrence: None)
  Receive Date: 20080811
  Receipt Date: 20080807
  Transmission Date: 20090109
  Serious: Yes (Hospitalization)
  Sender: FDA-Public Use
  Company Number: FR-BRISTOL-MYERS SQUIBB COMPANY-14293450

PATIENT
  Sex: Male
  Weight: 1 kg

DRUGS (3)
  1. CORGARD [Suspect]
     Route: 064
     Dates: start: 20070101, end: 20070101
  2. ASPIRIN [Suspect]
     Dosage: FORM = POWDER
     Route: 064
  3. HEPARIN [Concomitant]
     Route: 064
     Dates: start: 20070101, end: 20070101

REACTIONS (3)
  - ARRHYTHMIA [None]
  - NEONATAL RESPIRATORY DISTRESS SYNDROME [None]
  - RESPIRATORY DISTRESS [None]
